FAERS Safety Report 17955003 (Version 1)
Quarter: 2020Q2

REPORT INFORMATION
  Report Type: Spontaneous
  Country: AT (occurrence: AT)
  Receive Date: 20200629
  Receipt Date: 20200629
  Transmission Date: 20200714
  Serious: Yes (Hospitalization)
  Sender: FDA-Public Use
  Company Number: AT-ROCHE-2632189

PATIENT
  Age: 46 Year
  Sex: Female

DRUGS (1)
  1. TOCILIZUMAB. [Suspect]
     Active Substance: TOCILIZUMAB
     Indication: OVERLAP SYNDROME
     Route: 065

REACTIONS (2)
  - Multiple organ dysfunction syndrome [Unknown]
  - Bacterial sepsis [Not Recovered/Not Resolved]
